FAERS Safety Report 19626243 (Version 1)
Quarter: 2021Q3

REPORT INFORMATION
  Report Type: Other
  Country: CN (occurrence: CN)
  Receive Date: 20210729
  Receipt Date: 20210729
  Transmission Date: 20211014
  Serious: Yes (Life-Threatening, Other)
  Sender: FDA-Public Use
  Company Number: CH-DEXPHARM-20211182

PATIENT
  Age: 56 Year
  Sex: Female

DRUGS (12)
  1. IDARUBICIN [Suspect]
     Active Substance: IDARUBICIN
  2. IMATINIB. [Suspect]
     Active Substance: IMATINIB MESYLATE
  3. METHOTREXATE. [Suspect]
     Active Substance: METHOTREXATE
  4. VINCRISTINE [Suspect]
     Active Substance: VINCRISTINE
  5. DEXAMETHASONE. [Suspect]
     Active Substance: DEXAMETHASONE
  6. VINDESINE [Suspect]
     Active Substance: VINDESINE
  7. CYCLOPHOSPHAMIDE. [Suspect]
     Active Substance: CYCLOPHOSPHAMIDE
  8. PEG/L?ASPARAGINASE [Suspect]
     Active Substance: PEGASPARGASE
  9. FLUDARABINE [Suspect]
     Active Substance: FLUDARABINE PHOSPHATE
  10. CICLOSPORIN [Concomitant]
     Active Substance: CYCLOSPORINE
  11. NILOTINIB [Suspect]
     Active Substance: NILOTINIB
  12. HYDROPREDNISONE [Suspect]
     Active Substance: PREDNISOLONE

REACTIONS (1)
  - Haematotoxicity [Recovered/Resolved]
